FAERS Safety Report 6759057-5 (Version None)
Quarter: 2010Q2

REPORT INFORMATION
  Report Type: 
  Country: None (occurrence: None)
  Receive Date: 20100607
  Receipt Date: 20100528
  Transmission Date: 20101027
  Serious: Yes (Hospitalization)
  Sender: FDA-Public Use
  Company Number: FR-PURDUE-GBR-2010-0006605

PATIENT
  Sex: Male

DRUGS (9)
  1. OXYCONTIN [Suspect]
     Indication: DRUG USE FOR UNKNOWN INDICATION
     Dosage: 10 MG, BID
     Route: 048
     Dates: start: 20100427, end: 20100430
  2. ACTONEL [Suspect]
     Indication: DRUG USE FOR UNKNOWN INDICATION
     Dosage: 30 MG, DAILY
     Route: 048
     Dates: start: 20100427, end: 20100507
  3. ZYLORIC                            /00003301/ [Suspect]
     Indication: DRUG USE FOR UNKNOWN INDICATION
     Dosage: 300 MG, DAILY
     Route: 048
     Dates: end: 20100507
  4. OMIX [Concomitant]
     Dosage: 0.4 MG, DAILY
     Route: 065
  5. PROSCAR [Concomitant]
     Dosage: 1 DF, DAILY
     Route: 065
  6. MOGADON [Concomitant]
     Dosage: 1 DF, DAILY
  7. FLUDEX LP [Concomitant]
     Dosage: 1.5 MG, DAILY
     Route: 065
  8. RAMIPRIL [Concomitant]
     Dosage: 10 MG, DAILY
     Route: 065
  9. AMAREL [Concomitant]
     Dosage: 2 MG, DAILY
     Route: 065

REACTIONS (1)
  - ERYTHEMA MULTIFORME [None]
